FAERS Safety Report 6068012-2 (Version None)
Quarter: 2009Q1

REPORT INFORMATION
  Report Type: 
  Country: None (occurrence: None)
  Receive Date: 20090206
  Receipt Date: 20090204
  Transmission Date: 20090719
  Serious: Yes (Hospitalization, Other)
  Sender: FDA-Public Use
  Company Number: US-ASTRAZENECA-2009UW03230

PATIENT
  Age: 24018 Day
  Sex: Female
  Weight: 63.5 kg

DRUGS (7)
  1. NEXIUM [Suspect]
     Route: 048
  2. ATIVAN [Concomitant]
  3. BENTYL [Concomitant]
  4. LOMOTIL [Concomitant]
  5. CANASA [Concomitant]
  6. ASACOL [Concomitant]
  7. NEURONTIN [Concomitant]

REACTIONS (4)
  - CARDIAC ANEURYSM [None]
  - CARDIAC OPERATION [None]
  - MYOCARDIAL INFARCTION [None]
  - STRESS [None]
